FAERS Safety Report 6355537-5 (Version None)
Quarter: 2009Q3

REPORT INFORMATION
  Report Type: 
  Country: None (occurrence: None)
  Receive Date: 20090914
  Receipt Date: 20090910
  Transmission Date: 20100115
  Serious: Yes (Life-Threatening, Hospitalization, Disabling)
  Sender: FDA-Public Use
  Company Number: PHHY2009DK01861

PATIENT
  Sex: Female

DRUGS (2)
  1. VOLTAREN [Suspect]
     Indication: MIGRAINE
     Dosage: 1 TAB/DAY
     Route: 048
     Dates: start: 19980419
  2. DICLOFENAC RAPID [Suspect]
     Indication: MIGRAINE
     Dosage: 1 TAB/DAY
     Route: 048
     Dates: start: 19980419

REACTIONS (14)
  - ANXIETY [None]
  - ASTHENIA [None]
  - CEREBROVASCULAR ACCIDENT [None]
  - CONVULSION [None]
  - DIZZINESS [None]
  - FACIAL PALSY [None]
  - FATIGUE [None]
  - HEMIPARESIS [None]
  - MIGRAINE WITHOUT AURA [None]
  - MUSCULAR WEAKNESS [None]
  - NERVOUS SYSTEM DISORDER [None]
  - PARAESTHESIA [None]
  - PERIPHERAL PARALYSIS [None]
  - SYNCOPE [None]
